FAERS Safety Report 14342156 (Version 1)
Quarter: 2018Q1

REPORT INFORMATION
  Report Type: Spontaneous
  Country: US (occurrence: US)
  Receive Date: 20180102
  Receipt Date: 20180102
  Transmission Date: 20180509
  Serious: No
  Sender: FDA-Public Use
  Company Number: US-TEVA-2017-US-833079

PATIENT
  Age: 46 Year
  Sex: Male

DRUGS (2)
  1. PROAIR HFA [Suspect]
     Active Substance: ALBUTEROL SULFATE
     Dates: start: 201604, end: 20171205
  2. PROAIR HFA [Suspect]
     Active Substance: ALBUTEROL SULFATE
     Indication: BRONCHITIS
     Dates: start: 201604, end: 20171205

REACTIONS (1)
  - Breath odour [Recovered/Resolved]

NARRATIVE: CASE EVENT DATE: 20171205
